FAERS Safety Report 8583229-0 (Version None)
Quarter: 2012Q3

REPORT INFORMATION
  Report Type: 
  Country: None (occurrence: None)
  Receive Date: 20120809
  Receipt Date: 20120807
  Transmission Date: 20120928
  Serious: Yes (Disabling)
  Sender: FDA-Public Use
  Company Number: US-ACTELION-A-US2012-69784

PATIENT
  Age: 67 Year
  Sex: Male

DRUGS (3)
  1. VENTAVIS [Suspect]
     Indication: PULMONARY ARTERIAL HYPERTENSION
     Dosage: 2.5 MCG, QD
     Route: 055
     Dates: start: 20120601
  2. ASPIRIN [Concomitant]
  3. VENTAVIS [Suspect]
     Dosage: 5 MCG, UNK
     Route: 055

REACTIONS (2)
  - CARDIAC SEPTAL DEFECT RESIDUAL SHUNT [None]
  - FLUSHING [None]
